FAERS Safety Report 7451196-9 (Version None)
Quarter: 2011Q2

REPORT INFORMATION
  Report Type: 
  Country: None (occurrence: None)
  Receive Date: 20110502
  Receipt Date: 20110426
  Transmission Date: 20111010
  Serious: Yes (Other)
  Sender: FDA-Public Use
  Company Number: PHHY2011US27360

PATIENT
  Sex: Female

DRUGS (3)
  1. DIOVAN [Suspect]
     Indication: BLOOD PRESSURE ABNORMAL
  2. DIOVAN [Suspect]
     Dosage: 320 MG, QD
  3. IRON [Suspect]

REACTIONS (3)
  - PAIN [None]
  - BLOOD PRESSURE INCREASED [None]
  - RENAL CANCER [None]
